FAERS Safety Report 11588303 (Version 4)
Quarter: 2015Q4

REPORT INFORMATION
  Report Type: Report from Study
  Country: DE (occurrence: DE)
  Receive Date: 20151002
  Receipt Date: 20151102
  Transmission Date: 20160304
  Serious: Yes (Other)
  Sender: FDA-Public Use
  Company Number: PHHY2015DE117919

PATIENT
  Sex: Female

DRUGS (1)
  1. GILENYA [Suspect]
     Active Substance: FINGOLIMOD HYDROCHLORIDE
     Indication: MULTIPLE SCLEROSIS
     Dosage: 0.5 MG, QD
     Route: 048
     Dates: start: 20130601

REACTIONS (4)
  - Epilepsy [Unknown]
  - Blood glucose fluctuation [Unknown]
  - Multiple sclerosis relapse [Unknown]
  - Monoplegia [Unknown]

NARRATIVE: CASE EVENT DATE: 2015
